FAERS Safety Report 22974765 (Version 2)
Quarter: 2023Q4

REPORT INFORMATION
  Report Type: Spontaneous
  Country: US (occurrence: US)
  Receive Date: 20230923
  Receipt Date: 20231218
  Transmission Date: 20240110
  Serious: No
  Sender: FDA-Public Use
  Company Number: US-002147023-NVSC2023US206288

PATIENT
  Sex: Female
  Weight: 83.461 kg

DRUGS (1)
  1. LEQVIO [Suspect]
     Active Substance: INCLISIRAN SODIUM
     Indication: Low density lipoprotein increased
     Dosage: UNK (284 MG/1.5 ML)
     Route: 058
     Dates: start: 202211

REACTIONS (1)
  - Low density lipoprotein increased [Not Recovered/Not Resolved]
